APPROVED DRUG PRODUCT: LEVOLEUCOVORIN CALCIUM
Active Ingredient: LEVOLEUCOVORIN CALCIUM
Strength: EQ 175MG BASE/17.5ML (EQ 10MG BASE/ML)
Dosage Form/Route: SOLUTION;INTRAVENOUS
Application: A210623 | Product #001
Applicant: NOVAST LABORATORIES LTD
Approved: May 3, 2018 | RLD: No | RS: No | Type: DISCN